FAERS Safety Report 4875020-3 (Version None)
Quarter: 2006Q1

REPORT INFORMATION
  Report Type: 
  Country: None (occurrence: None)
  Receive Date: 20060105
  Receipt Date: 20051223
  Transmission Date: 20060701
  Serious: Yes (Hospitalization)
  Sender: FDA-Public Use
  Company Number: 2005-04934

PATIENT
  Age: 44 Year
  Sex: Male
  Weight: 145.2 kg

DRUGS (2)
  1. NORCO [Suspect]
     Indication: DEPENDENCE
     Dosage: UP TO 50 PER DAY, ORAL
     Route: 048
  2. ACETAMINOPHEN AND HYDROCODONE BITARTRATE [Suspect]
     Indication: DEPENDENCE
     Dosage: UP TO 50 PER DAY, ORAL
     Route: 048

REACTIONS (6)
  - DEHYDRATION [None]
  - DEPENDENCE [None]
  - DIARRHOEA [None]
  - GASTRITIS [None]
  - MUSCULOSKELETAL CHEST PAIN [None]
  - NAUSEA [None]
